FAERS Safety Report 9500695 (Version 1)
Quarter: 2013Q3

REPORT INFORMATION
  Report Type: Spontaneous
  Country: JP (occurrence: JP)
  Receive Date: 20130905
  Receipt Date: 20130905
  Transmission Date: 20140515
  Serious: Yes (Hospitalization, Other)
  Sender: FDA-Public Use
  Company Number: JP-PFIZER INC-2013253867

PATIENT
  Age: 80 Year
  Sex: Female

DRUGS (1)
  1. GABAPEN [Suspect]
     Indication: ANALGESIC THERAPY
     Dosage: 400 MG, DAILY
     Route: 048

REACTIONS (2)
  - Off label use [Unknown]
  - Cerebral infarction [Unknown]
